FAERS Safety Report 7896158-2 (Version None)
Quarter: 2011Q4

REPORT INFORMATION
  Report Type: 
  Country: None (occurrence: None)
  Receive Date: 20111106
  Receipt Date: 20110906
  Transmission Date: 20120403
  Serious: No
  Sender: FDA-Public Use
  Company Number: US-AMGEN-USASP2011045578

PATIENT
  Age: 17 Year
  Sex: Male

DRUGS (1)
  1. ENBREL [Suspect]
     Indication: ANKYLOSING SPONDYLITIS
     Dosage: 50 MG, QWK
     Dates: start: 20110802

REACTIONS (5)
  - NASAL DISCOMFORT [None]
  - IRRITABILITY [None]
  - EYE PRURITUS [None]
  - PYREXIA [None]
  - HYPERSENSITIVITY [None]
